FAERS Safety Report 9331303 (Version 1)
Quarter: 2013Q2

REPORT INFORMATION
  Report Type: Report from Study
  Country: FR (occurrence: FR)
  Receive Date: 20130605
  Receipt Date: 20130605
  Transmission Date: 20140414
  Serious: Yes (Other)
  Sender: FDA-Public Use
  Company Number: FR-BAXTER-2013BAX020336

PATIENT
  Sex: Male

DRUGS (1)
  1. FEIBA 1000 U/20 ML, POUDRE ET SOLVANT POUR SOLUTION INJECTABLE [Suspect]
     Indication: HAEMORRHAGE
     Route: 042

REACTIONS (3)
  - Drug effect incomplete [Recovered/Resolved]
  - Hypersensitivity [Recovered/Resolved]
  - Paraesthesia oral [Recovered/Resolved]
